FAERS Safety Report 16423210 (Version 2)
Quarter: 2019Q3

REPORT INFORMATION
  Report Type: Spontaneous
  Country: US (occurrence: US)
  Receive Date: 20190612
  Receipt Date: 20190809
  Transmission Date: 20191004
  Serious: Yes (Disabling)
  Sender: FDA-Public Use
  Company Number: US-JNJFOC-20190610189

PATIENT
  Age: 46 Year
  Sex: Female
  Weight: 47.6 kg

DRUGS (15)
  1. PROPANOLOL                         /00030001/ [Suspect]
     Active Substance: PROPRANOLOL HYDROCHLORIDE
     Indication: AKATHISIA
  2. PROPANOLOL                         /00030001/ [Suspect]
     Active Substance: PROPRANOLOL HYDROCHLORIDE
  3. MIRTAZAPINE. [Concomitant]
     Active Substance: MIRTAZAPINE
     Indication: INSOMNIA
  4. CLONAZEPAM. [Concomitant]
     Active Substance: CLONAZEPAM
     Indication: ANXIETY
     Dosage: AS NEEDED
  5. SPRAVATO [Suspect]
     Active Substance: ESKETAMINE
     Indication: PRODUCT USED FOR UNKNOWN INDICATION
     Dates: end: 201906
  6. CLOZAPINE. [Interacting]
     Active Substance: CLOZAPINE
     Indication: MAJOR DEPRESSION
     Dosage: EVERY AM
  7. CLOZAPINE. [Interacting]
     Active Substance: CLOZAPINE
     Dosage: AT SLEEP
  8. MIRTAZAPINE. [Concomitant]
     Active Substance: MIRTAZAPINE
     Indication: ANXIETY
  9. PRAMIPEXOLE. [Concomitant]
     Active Substance: PRAMIPEXOLE
     Dosage: AT 12 PM AND 3 PM
  10. MIRTAZAPINE. [Concomitant]
     Active Substance: MIRTAZAPINE
     Indication: DEPRESSION
     Dosage: AT SLEEP
  11. CLONAZEPAM. [Concomitant]
     Active Substance: CLONAZEPAM
     Indication: AGITATION
  12. CLOZAPINE. [Interacting]
     Active Substance: CLOZAPINE
     Dosage: AT SLEEP
  13. PROPANOLOL                         /00030001/ [Suspect]
     Active Substance: PROPRANOLOL HYDROCHLORIDE
  14. MODAFINIL. [Concomitant]
     Active Substance: MODAFINIL
     Indication: SOMNOLENCE
     Dosage: UPON AWAKENING
     Dates: end: 20190620
  15. MODAFINIL. [Concomitant]
     Active Substance: MODAFINIL
     Dosage: EVERY AM

REACTIONS (5)
  - Depression suicidal [Recovered/Resolved]
  - Drug interaction [Unknown]
  - Psychomotor hyperactivity [Unknown]
  - Anxiety [Unknown]
  - Akathisia [Unknown]

NARRATIVE: CASE EVENT DATE: 201906
